FAERS Safety Report 22700235 (Version 4)
Quarter: 2024Q1

REPORT INFORMATION
  Report Type: Spontaneous
  Country: US (occurrence: US)
  Receive Date: 20230713
  Receipt Date: 20240103
  Transmission Date: 20240410
  Serious: Yes (Other)
  Sender: FDA-Public Use
  Company Number: US-BRISTOL-MYERS SQUIBB COMPANY-2023-098647

PATIENT
  Age: 76 Year
  Sex: Female
  Weight: 83.91 kg

DRUGS (2)
  1. POMALYST [Suspect]
     Active Substance: POMALIDOMIDE
     Indication: Plasma cell myeloma
     Dosage: D 1-21 Q 28 DAYS
     Route: 048
     Dates: start: 20230425
  2. POMALYST [Suspect]
     Active Substance: POMALIDOMIDE
     Dosage: D 1-21 Q 28 DAYS
     Route: 048
     Dates: start: 20230425

REACTIONS (5)
  - Fatigue [Unknown]
  - Neuropathy peripheral [Not Recovered/Not Resolved]
  - Diarrhoea [Not Recovered/Not Resolved]
  - Constipation [Not Recovered/Not Resolved]
  - Urinary tract infection [Recovered/Resolved]
